FAERS Safety Report 13051368 (Version 1)
Quarter: 2016Q4

REPORT INFORMATION
  Report Type: Spontaneous
  Country: US (occurrence: US)
  Receive Date: 20161221
  Receipt Date: 20161221
  Transmission Date: 20170207
  Serious: No
  Sender: FDA-Public Use
  Company Number: US-NOVOPROD-478552

PATIENT
  Age: 28 Year
  Sex: Male

DRUGS (1)
  1. LEVEMIR [Suspect]
     Active Substance: INSULIN DETEMIR
     Indication: PRODUCT USED FOR UNKNOWN INDICATION
     Route: 058

REACTIONS (12)
  - Cardiac discomfort [Unknown]
  - Pharyngeal oedema [Unknown]
  - Abdominal distension [Unknown]
  - Peripheral swelling [Unknown]
  - Confusional state [Unknown]
  - Throat tightness [Unknown]
  - Rash [Unknown]
  - Chest pain [Unknown]
  - Dysphonia [Unknown]
  - Mood altered [Unknown]
  - Somnolence [Unknown]
  - Dyspnoea [Unknown]
